FAERS Safety Report 17912655 (Version 5)
Quarter: 2022Q1

REPORT INFORMATION
  Report Type: Spontaneous
  Country: US (occurrence: US)
  Receive Date: 20200618
  Receipt Date: 20220315
  Transmission Date: 20220423
  Serious: Yes (Death, Other)
  Sender: FDA-Public Use
  Company Number: US-GILEAD-2020-0473539

PATIENT
  Age: 59 Year
  Sex: Female
  Weight: 104.32 kg

DRUGS (96)
  1. VIREAD [Suspect]
     Active Substance: TENOFOVIR DISOPROXIL FUMARATE
     Indication: HIV infection
     Dosage: UNK
     Route: 048
     Dates: start: 2001, end: 20080122
  2. VIREAD [Suspect]
     Active Substance: TENOFOVIR DISOPROXIL FUMARATE
     Dosage: UNK
     Route: 048
     Dates: start: 20040727, end: 200805
  3. TRUVADA [Suspect]
     Active Substance: EMTRICITABINE\TENOFOVIR DISOPROXIL FUMARATE
     Indication: HIV infection
     Dosage: UNK
     Route: 048
     Dates: start: 2005, end: 2014
  4. TRUVADA [Suspect]
     Active Substance: EMTRICITABINE\TENOFOVIR DISOPROXIL FUMARATE
     Dosage: UNK
     Route: 048
     Dates: start: 20080513, end: 20110811
  5. BACTRIM [Concomitant]
     Active Substance: SULFAMETHOXAZOLE\TRIMETHOPRIM
  6. VITAMIN D NOS [Concomitant]
     Active Substance: VITAMIN D NOS
  7. LEVOTHYROXINE [Concomitant]
     Active Substance: LEVOTHYROXINE
  8. INSULIN NOS [Concomitant]
     Active Substance: INSULIN NOS
  9. DIAZEPAM [Concomitant]
     Active Substance: DIAZEPAM
  10. ZOLOFT [Concomitant]
     Active Substance: SERTRALINE HYDROCHLORIDE
  11. VALIUM [Concomitant]
     Active Substance: DIAZEPAM
  12. ACYCLOVIR [Concomitant]
     Active Substance: ACYCLOVIR
  13. LYRICA [Concomitant]
     Active Substance: PREGABALIN
  14. DIPHENOXYLATE [Concomitant]
     Active Substance: DIPHENOXYLATE
  15. PROMETHAZINE [Concomitant]
     Active Substance: PROMETHAZINE HYDROCHLORIDE
  16. LOPERAMIDE [Concomitant]
     Active Substance: LOPERAMIDE
  17. NAPROXEN [Concomitant]
     Active Substance: NAPROXEN
  18. MOMETASONE FUROATE [Concomitant]
     Active Substance: MOMETASONE FUROATE
  19. AMOXICILLIN [Concomitant]
     Active Substance: AMOXICILLIN
  20. LASIX [Concomitant]
     Active Substance: FUROSEMIDE
  21. ASPIRIN [Concomitant]
     Active Substance: ASPIRIN
  22. TYLENOL WITH CODEINE [Concomitant]
     Active Substance: ACETAMINOPHEN\CODEINE PHOSPHATE
  23. ZANTAC [Concomitant]
     Active Substance: RANITIDINE HYDROCHLORIDE
  24. ARANESP [Concomitant]
     Active Substance: DARBEPOETIN ALFA
  25. MAXALT [Concomitant]
     Active Substance: RIZATRIPTAN BENZOATE
  26. EPOGEN [Concomitant]
     Active Substance: ERYTHROPOIETIN
  27. VENOFER [Concomitant]
     Active Substance: IRON SUCROSE
  28. GABAPENTIN [Concomitant]
     Active Substance: GABAPENTIN
  29. HEPARIN [Concomitant]
     Active Substance: HEPARIN SODIUM
  30. PREDNISONE [Concomitant]
     Active Substance: PREDNISONE
  31. EPIVIR [Concomitant]
     Active Substance: LAMIVUDINE
  32. INTELENCE [Concomitant]
     Active Substance: ETRAVIRINE
  33. JULUCA [Concomitant]
     Active Substance: DOLUTEGRAVIR SODIUM\RILPIVIRINE HYDROCHLORIDE
  34. KALETRA [Concomitant]
     Active Substance: LOPINAVIR\RITONAVIR
  35. NORVIR [Concomitant]
     Active Substance: RITONAVIR
  36. REYATAZ [Concomitant]
     Active Substance: ATAZANAVIR SULFATE
  37. VIDEX EC [Concomitant]
     Active Substance: DIDANOSINE
  38. VIRACEPT [Concomitant]
     Active Substance: NELFINAVIR MESYLATE
  39. VIRAMUNE [Concomitant]
     Active Substance: NEVIRAPINE
  40. ZERIT [Concomitant]
     Active Substance: STAVUDINE
  41. AMOXICILLIN\CLAVULANIC ACID [Concomitant]
     Active Substance: AMOXICILLIN\CLAVULANIC ACID
  42. FUROSEMIDE [Concomitant]
     Active Substance: FUROSEMIDE
  43. CLONIDINE [Concomitant]
     Active Substance: CLONIDINE
  44. DIGOXIN [Concomitant]
     Active Substance: DIGOXIN
  45. AMLODIPINE [Concomitant]
     Active Substance: AMLODIPINE BESYLATE
  46. LOSARTAN [Concomitant]
     Active Substance: LOSARTAN
  47. LISINOPRIL [Concomitant]
     Active Substance: LISINOPRIL
  48. BENICAR HCT [Concomitant]
     Active Substance: HYDROCHLOROTHIAZIDE\OLMESARTAN MEDOXOMIL
  49. CARVEDILOL [Concomitant]
     Active Substance: CARVEDILOL
  50. LIPITOR [Concomitant]
     Active Substance: ATORVASTATIN CALCIUM
  51. LOPID [Concomitant]
     Active Substance: GEMFIBROZIL
  52. DICLOFENAC [Concomitant]
     Active Substance: DICLOFENAC
  53. FENOFIBRATE [Concomitant]
     Active Substance: FENOFIBRATE
  54. ZETIA [Concomitant]
     Active Substance: EZETIMIBE
  55. CLOBETASOL PROPIONATE [Concomitant]
     Active Substance: CLOBETASOL PROPIONATE
  56. PIROXICAM [Concomitant]
     Active Substance: PIROXICAM
  57. EFFIENT [Concomitant]
     Active Substance: PRASUGREL HYDROCHLORIDE
  58. TRIAMCINOLONE [Concomitant]
     Active Substance: TRIAMCINOLONE
  59. COLACE [Concomitant]
     Active Substance: DOCUSATE SODIUM
  60. SULFAMETHOXAZOLE [Concomitant]
     Active Substance: SULFAMETHOXAZOLE
  61. DOXYCYCLINE [Concomitant]
     Active Substance: DOXYCYCLINE
  62. AZITHROMYCIN [Concomitant]
     Active Substance: AZITHROMYCIN
  63. ZITHROMAX [Concomitant]
     Active Substance: AZITHROMYCIN DIHYDRATE
  64. PROCARDIA [Concomitant]
     Active Substance: NIFEDIPINE
  65. HYDROCHLOROTHIAZIDE [Concomitant]
     Active Substance: HYDROCHLOROTHIAZIDE
  66. MEGESTROL [Concomitant]
     Active Substance: MEGESTROL
  67. OXYCODONE [Concomitant]
     Active Substance: OXYCODONE
  68. HYDROXYCHLOROQUINE SULFATE [Concomitant]
     Active Substance: HYDROXYCHLOROQUINE SULFATE
  69. SILVER SULFADIAZINE [Concomitant]
     Active Substance: SILVER SULFADIAZINE
  70. SENNA [Concomitant]
     Active Substance: SENNA LEAF\SENNOSIDES\SENNOSIDES A AND B
  71. KETOCONAZOLE [Concomitant]
     Active Substance: KETOCONAZOLE
  72. VICODIN [Concomitant]
     Active Substance: ACETAMINOPHEN\HYDROCODONE BITARTRATE
  73. INSULIN GLARGINE [Concomitant]
     Active Substance: INSULIN GLARGINE
  74. LEVEMIR [Concomitant]
     Active Substance: INSULIN DETEMIR
  75. NOVOLOG [Concomitant]
     Active Substance: INSULIN ASPART
  76. GLUCOPHAGE [Concomitant]
     Active Substance: METFORMIN HYDROCHLORIDE
  77. FENTANYL [Concomitant]
     Active Substance: FENTANYL
  78. VENTOLIN [Concomitant]
     Active Substance: ALBUTEROL SULFATE
  79. ATOVAQUONE [Concomitant]
     Active Substance: ATOVAQUONE
  80. NYSTATIN [Concomitant]
     Active Substance: NYSTATIN
  81. SEROQUEL [Concomitant]
     Active Substance: QUETIAPINE FUMARATE
  82. DIPHENHYDRAMINE [Concomitant]
     Active Substance: DIPHENHYDRAMINE
  83. HECTOROL [Concomitant]
     Active Substance: DOXERCALCIFEROL
  84. DEXTROSE [Concomitant]
     Active Substance: DEXTROSE
  85. LIDOCAINE [Concomitant]
     Active Substance: LIDOCAINE
  86. NITROSTAT [Concomitant]
     Active Substance: NITROGLYCERIN
  87. CORTISONE [Concomitant]
     Active Substance: CORTISONE
  88. SULFAMETHOXAZOLE\TRIMETHOPRIM [Concomitant]
     Active Substance: SULFAMETHOXAZOLE\TRIMETHOPRIM
  89. FOLIC ACID [Concomitant]
     Active Substance: FOLIC ACID
  90. CLARIN [LORATADINE] [Concomitant]
  91. MONTELUKAST SODIUM [Concomitant]
     Active Substance: MONTELUKAST SODIUM
  92. SYMBICORT [Concomitant]
     Active Substance: BUDESONIDE\FORMOTEROL FUMARATE DIHYDRATE
  93. SPIRIVA [Concomitant]
     Active Substance: TIOTROPIUM BROMIDE MONOHYDRATE
  94. MIDODRINE [Concomitant]
     Active Substance: MIDODRINE
  95. DIBUCAINE HYDROCHLORIDE [Concomitant]
     Active Substance: DIBUCAINE HYDROCHLORIDE
  96. KLOR-CON [Concomitant]
     Active Substance: POTASSIUM CHLORIDE

REACTIONS (11)
  - Death [Fatal]
  - Chronic kidney disease [Recovered/Resolved]
  - Fibula fracture [Recovered/Resolved]
  - Fibula fracture [Recovered/Resolved]
  - Ankle fracture [Unknown]
  - End stage renal disease [Recovered/Resolved]
  - Renal failure [Recovered/Resolved]
  - Tooth loss [Recovered/Resolved]
  - Emotional distress [Unknown]
  - Bone density decreased [Unknown]
  - Pain [Unknown]

NARRATIVE: CASE EVENT DATE: 20060101
